FAERS Safety Report 8163949-2 (Version None)
Quarter: 2012Q1

REPORT INFORMATION
  Report Type: 
  Country: None (occurrence: None)
  Receive Date: 20120224
  Receipt Date: 20120217
  Transmission Date: 20120608
  Serious: Yes (Other)
  Sender: FDA-Public Use
  Company Number: US-US-EMD SERONO, INC.-7114613

PATIENT
  Sex: Female

DRUGS (2)
  1. REBIF [Suspect]
     Indication: MULTIPLE SCLEROSIS
     Route: 058
     Dates: start: 20040412
  2. EFFEXOR [Concomitant]

REACTIONS (6)
  - FATIGUE [None]
  - SYSTEMIC LUPUS ERYTHEMATOSUS [None]
  - INTERVERTEBRAL DISC DEGENERATION [None]
  - ABNORMAL DREAMS [None]
  - SLEEP DISORDER [None]
  - DEPRESSION [None]
